FAERS Safety Report 15382801 (Version 1)
Quarter: 2018Q3

REPORT INFORMATION
  Report Type: Spontaneous
  Country: US (occurrence: US)
  Receive Date: 20180913
  Receipt Date: 20180913
  Transmission Date: 20181010
  Serious: Yes (Other)
  Sender: FDA-Public Use
  Company Number: US-CELGENEUS-USA-20180903783

PATIENT
  Age: 89 Year
  Sex: Male

DRUGS (1)
  1. REVLIMID [Suspect]
     Active Substance: LENALIDOMIDE
     Indication: PLASMA CELL MYELOMA
     Dosage: 15 MILLIGRAM
     Route: 048
     Dates: start: 20180730

REACTIONS (5)
  - Mood swings [Not Recovered/Not Resolved]
  - Depressive symptom [Not Recovered/Not Resolved]
  - Clostridium difficile infection [Not Recovered/Not Resolved]
  - Staring [Not Recovered/Not Resolved]
  - Eating disorder symptom [Not Recovered/Not Resolved]

NARRATIVE: CASE EVENT DATE: 20180901
